FAERS Safety Report 8713752 (Version 2)
Quarter: 2014Q1

REPORT INFORMATION
  Report Type: Spontaneous
  Country: US (occurrence: US)
  Receive Date: 20120808
  Receipt Date: 20140128
  Transmission Date: 20141002
  Serious: Yes (Hospitalization)
  Sender: FDA-Public Use
  Company Number: US-ASTRAZENECA-2012SE54042

PATIENT
  Age: 50 Year
  Sex: Male
  Weight: 90.7 kg

DRUGS (5)
  1. NEXIUM [Suspect]
     Indication: GASTROOESOPHAGEAL REFLUX DISEASE
     Route: 048
     Dates: start: 2007
  2. PRILOSEC [Suspect]
     Indication: GASTROOESOPHAGEAL REFLUX DISEASE
     Dosage: TWO TIMES A DAY
     Route: 048
     Dates: end: 2007
  3. WELBUTRIN [Concomitant]
     Indication: DEPRESSION
     Dosage: DAILY
     Route: 048
     Dates: start: 201311
  4. VALIUM [Concomitant]
     Indication: ANXIETY
     Route: 048
     Dates: start: 201310
  5. TUMS [Concomitant]

REACTIONS (8)
  - Abdominal pain upper [Unknown]
  - Negative thoughts [Unknown]
  - Condition aggravated [Unknown]
  - Gastrooesophageal reflux disease [Unknown]
  - Choking sensation [Unknown]
  - Depression [Unknown]
  - Intentional drug misuse [Unknown]
  - Drug dose omission [Unknown]
